FAERS Safety Report 8989952 (Version 1)
Quarter: 2012Q4

REPORT INFORMATION
  Report Type: 
  Country: DE (occurrence: DE)
  Receive Date: 20121228
  Receipt Date: 20121228
  Transmission Date: 20130627
  Serious: Yes (Other)
  Sender: FDA-Public Use
  Company Number: DE-GLAXOSMITHKLINE-D0078260A

PATIENT
  Age: 38 Year
  Sex: Female
  Weight: 60 kg

DRUGS (3)
  1. LAMICTAL [Suspect]
     Dosage: 800MG per day
     Route: 048
     Dates: start: 20121225, end: 20121225
  2. APYDAN EXTENT [Suspect]
     Dosage: 150MG See dosage text
     Route: 048
     Dates: start: 20121225, end: 20121225
  3. VIMPAT [Suspect]
     Dosage: 100MG See dosage text
     Route: 048
     Dates: start: 20121225, end: 20121225

REACTIONS (2)
  - Accidental exposure to product [Unknown]
  - Dizziness [Unknown]
